FAERS Safety Report 5808580-6 (Version None)
Quarter: 2008Q3

REPORT INFORMATION
  Report Type: 
  Country: None (occurrence: None)
  Receive Date: 20080709
  Receipt Date: 20080709
  Transmission Date: 20090109
  Serious: No
  Sender: FDA-Public Use
  Company Number: None

PATIENT
  Age: 58 Year
  Sex: Male
  Weight: 108 kg

DRUGS (1)
  1. SALSALATE [Suspect]
     Indication: PAIN
     Dosage: 1000 MG TID PO
     Route: 048
     Dates: start: 20080122, end: 20080218

REACTIONS (1)
  - RENAL FAILURE ACUTE [None]
